FAERS Safety Report 11791605 (Version 1)
Quarter: 2015Q4

REPORT INFORMATION
  Report Type: Report from Study
  Country: US (occurrence: US)
  Receive Date: 20151201
  Receipt Date: 20151201
  Transmission Date: 20160305
  Serious: Yes (Other)
  Sender: FDA-Public Use
  Company Number: US-GILEAD-2015-0185097

PATIENT
  Age: 89 Year
  Sex: Female

DRUGS (5)
  1. AMBRISENTAN [Suspect]
     Active Substance: AMBRISENTAN
     Indication: PRODUCT USED FOR UNKNOWN INDICATION
     Dosage: 10 MG, QD
     Route: 065
  2. LASIX [Concomitant]
     Active Substance: FUROSEMIDE
  3. MAXZIDE [Concomitant]
     Active Substance: HYDROCHLOROTHIAZIDE\TRIAMTERENE
  4. ALDACTONE [Concomitant]
     Active Substance: SPIRONOLACTONE
  5. AVAPRO [Concomitant]
     Active Substance: IRBESARTAN

REACTIONS (5)
  - Hypertension [Unknown]
  - Swelling [Unknown]
  - Oedema [Unknown]
  - Bedridden [Unknown]
  - Abasia [Unknown]
